FAERS Safety Report 8317956-7 (Version None)
Quarter: 2012Q2

REPORT INFORMATION
  Report Type: 
  Country: None (occurrence: None)
  Receive Date: 20120427
  Receipt Date: 20120426
  Transmission Date: 20120825
  Serious: Yes (Disabling, Other)
  Sender: FDA-Public Use
  Company Number: GB-EISAI INC-E2020-10701-SPO-GB

PATIENT
  Age: 73 Year
  Sex: Female
  Weight: 74 kg

DRUGS (6)
  1. BENDROFLUMETHIAZIDE [Concomitant]
     Indication: BLOOD PRESSURE
     Route: 048
     Dates: start: 20040607
  2. RAMIPRIL [Concomitant]
     Route: 048
     Dates: start: 20050630
  3. SIMVASTATIN [Concomitant]
     Route: 048
     Dates: start: 20070219
  4. PREMARIN [Concomitant]
     Dates: start: 20070511
  5. DONEPEZIL HCL [Suspect]
     Indication: DEMENTIA
     Route: 048
     Dates: start: 20111028
  6. NOVOMIX [Concomitant]
     Dates: start: 20060413

REACTIONS (1)
  - HYPERSEXUALITY [None]
